FAERS Safety Report 12322831 (Version 1)
Quarter: 2016Q2

REPORT INFORMATION
  Report Type: Spontaneous
  Country: US (occurrence: None)
  Receive Date: 20160429
  Receipt Date: 20160429
  Transmission Date: 20160815
  Serious: Yes (Hospitalization)
  Sender: FDA-Public Use
  Company Number: None

PATIENT
  Age: 22 Year
  Sex: Female
  Weight: 52 kg

DRUGS (1)
  1. OMNIPAQUE [Suspect]
     Active Substance: IOHEXOL

REACTIONS (7)
  - Contrast media reaction [None]
  - Contrast media allergy [None]
  - Infusion site extravasation [None]
  - Soft tissue swelling [None]
  - Peripheral swelling [None]
  - Blister [None]
  - Pain in extremity [None]

NARRATIVE: CASE EVENT DATE: 20160407
